FAERS Safety Report 8785031 (Version 1)
Quarter: 2012Q4

REPORT INFORMATION
  Report Type: 
  Country: US (occurrence: US)
  Receive Date: 20120914
  Receipt Date: 20120914
  Transmission Date: 20130627
  Serious: Yes (Other)
  Sender: FDA-Public Use
  Company Number: US-SANOFI-AVENTIS-2012SA066759

PATIENT
  Sex: Male
  Weight: 68 kg

DRUGS (1)
  1. DDAVP [Suspect]
     Indication: DIABETES INSIPIDUS
     Route: 048
     Dates: start: 2007

REACTIONS (1)
  - Loss of consciousness [Not Recovered/Not Resolved]
